FAERS Safety Report 9163176 (Version 1)
Quarter: 2013Q1

REPORT INFORMATION
  Report Type: Report from Study
  Country: CA (occurrence: CA)
  Receive Date: 20130314
  Receipt Date: 20130314
  Transmission Date: 20140127
  Serious: Yes (Hospitalization, Other)
  Sender: FDA-Public Use
  Company Number: CA-ROCHE-1196342

PATIENT
  Age: 76 Year
  Sex: Male
  Weight: 84.4 kg

DRUGS (14)
  1. RITUXAN [Suspect]
     Indication: RHEUMATOID ARTHRITIS
     Route: 042
     Dates: start: 20130225
  2. ACTONEL [Concomitant]
  3. THYROXINE [Concomitant]
  4. DILTIAZEM [Concomitant]
  5. GLYBURIDE [Concomitant]
  6. METFORMIN [Concomitant]
  7. PREDNISONE [Concomitant]
  8. ALLOPURINOL [Concomitant]
  9. FOLIC ACID [Concomitant]
  10. VITAMIN B12 [Concomitant]
  11. LASIX [Concomitant]
  12. RABEPRAZOLE [Concomitant]
  13. TAMSULOSIN [Concomitant]
  14. PIOGLITAZONE [Concomitant]

REACTIONS (5)
  - Heart rate increased [Not Recovered/Not Resolved]
  - Blood pressure increased [Not Recovered/Not Resolved]
  - Dyspnoea [Unknown]
  - Arterial occlusive disease [Not Recovered/Not Resolved]
  - Chest pain [Recovered/Resolved]
